FAERS Safety Report 21609068 (Version 3)
Quarter: 2023Q4

REPORT INFORMATION
  Report Type: Spontaneous
  Country: US (occurrence: US)
  Receive Date: 20221117
  Receipt Date: 20231013
  Transmission Date: 20240110
  Serious: Yes (Other)
  Sender: FDA-Public Use
  Company Number: US-THERATECHNOLOGIES INC.-2022-THE-TES-000228

PATIENT

DRUGS (9)
  1. EGRIFTA SV [Suspect]
     Active Substance: TESAMORELIN ACETATE
     Indication: Lipodystrophy acquired
     Dosage: 0.35 ML, QD
     Route: 065
     Dates: start: 202207
  2. EGRIFTA SV [Suspect]
     Active Substance: TESAMORELIN ACETATE
     Dosage: UNK
     Route: 065
     Dates: end: 202210
  3. EGRIFTA SV [Suspect]
     Active Substance: TESAMORELIN ACETATE
     Dosage: 0.30 ML, QD
     Route: 065
     Dates: start: 20230814, end: 20230815
  4. EGRIFTA SV [Suspect]
     Active Substance: TESAMORELIN ACETATE
     Dosage: 0.35 ML, QD
     Route: 065
  5. EGRIFTA SV [Suspect]
     Active Substance: TESAMORELIN ACETATE
     Dosage: 0.35 ML (1.4 MG), QD
     Route: 058
     Dates: start: 202308
  6. EGRIFTA SV [Suspect]
     Active Substance: TESAMORELIN ACETATE
     Dosage: 0.35 ML (1.4 MG), QD
     Route: 058
  7. LORATADINE [Concomitant]
     Active Substance: LORATADINE
     Indication: Product used for unknown indication
     Dosage: UNK
     Route: 065
  8. ALBUTEROL [Concomitant]
     Active Substance: ALBUTEROL
     Indication: Product used for unknown indication
     Dosage: INHALER
     Route: 065
  9. TRULICITY [Concomitant]
     Active Substance: DULAGLUTIDE
     Indication: Diabetes mellitus
     Route: 065

REACTIONS (12)
  - Precancerous lesion of digestive tract [Not Recovered/Not Resolved]
  - Incorrect dose administered [Unknown]
  - Incorrect dose administered [Recovered/Resolved]
  - Asthma [Not Recovered/Not Resolved]
  - Asthenia [Not Recovered/Not Resolved]
  - Incorrect dose administered [Not Recovered/Not Resolved]
  - Decreased appetite [Not Recovered/Not Resolved]
  - Abnormal loss of weight [Not Recovered/Not Resolved]
  - Throat clearing [Not Recovered/Not Resolved]
  - Wrong technique in product usage process [Not Recovered/Not Resolved]
  - Injection site bruising [Unknown]
  - Injection site bruising [Not Recovered/Not Resolved]

NARRATIVE: CASE EVENT DATE: 20230814
